FAERS Safety Report 4455000-2 (Version None)
Quarter: 2004Q3

REPORT INFORMATION
  Report Type: 
  Country: None (occurrence: None)
  Receive Date: 20040921
  Receipt Date: 20040913
  Transmission Date: 20050211
  Serious: Yes (Other)
  Sender: FDA-Public Use
  Company Number: PHBS2004TW12144

PATIENT
  Age: 24 Year
  Sex: Male

DRUGS (4)
  1. CLOZAPINE [Suspect]
     Indication: SCHIZOPHRENIA
     Dosage: 400 MG/D
     Route: 065
  2. CLOZAPINE [Suspect]
     Dosage: 300 MG/D
     Route: 048
  3. CLOZAPINE [Suspect]
     Dosage: 325 MG/D
     Route: 065
  4. CLOZAPINE [Suspect]
     Dosage: 300 MG//D
     Route: 065

REACTIONS (5)
  - ANXIETY [None]
  - CONVULSION [None]
  - OBSESSIVE-COMPULSIVE DISORDER [None]
  - RESTLESSNESS [None]
  - THERAPEUTIC RESPONSE DECREASED [None]
